FAERS Safety Report 5746983-9 (Version None)
Quarter: 2008Q2

REPORT INFORMATION
  Report Type: 
  Country: None (occurrence: None)
  Receive Date: 20080522
  Receipt Date: 20080515
  Transmission Date: 20081010
  Serious: Yes (Hospitalization, Other)
  Sender: FDA-Public Use
  Company Number: US-PFIZER INC-2008042332

PATIENT
  Sex: Female

DRUGS (1)
  1. ZOLOFT [Suspect]
     Indication: POST-TRAUMATIC STRESS DISORDER

REACTIONS (3)
  - PLATELET COUNT DECREASED [None]
  - PSYCHOMOTOR HYPERACTIVITY [None]
  - THROMBOCYTOPENIC PURPURA [None]
